FAERS Safety Report 17217934 (Version 1)
Quarter: 2019Q4

REPORT INFORMATION
  Report Type: Spontaneous
  Country: SE (occurrence: SE)
  Receive Date: 20191231
  Receipt Date: 20191231
  Transmission Date: 20200122
  Serious: Yes (Other)
  Sender: FDA-Public Use
  Company Number: SE-TEVA-2019-SE-1159765

PATIENT
  Sex: Female

DRUGS (4)
  1. NITRAZEPAM [Suspect]
     Active Substance: NITRAZEPAM
     Dosage: 10 MG
     Route: 048
     Dates: start: 201903, end: 201903
  2. PROPAVAN [Suspect]
     Active Substance: PROPIOMAZINE
     Route: 048
     Dates: start: 20190327, end: 20190328
  3. STESOLID [Suspect]
     Active Substance: DIAZEPAM
     Dosage: 1 ST
     Route: 048
     Dates: start: 201903, end: 201903
  4. SEROQUEL [Suspect]
     Active Substance: QUETIAPINE FUMARATE
     Route: 048
     Dates: start: 201903, end: 201903

REACTIONS (4)
  - Mental impairment [Unknown]
  - Accidental overdose [Unknown]
  - Feeling abnormal [Unknown]
  - Discomfort [Unknown]

NARRATIVE: CASE EVENT DATE: 201903
